FAERS Safety Report 21706380 (Version 1)
Quarter: 2022Q4

REPORT INFORMATION
  Report Type: Spontaneous
  Country: US (occurrence: US)
  Receive Date: 20221209
  Receipt Date: 20221209
  Transmission Date: 20230113
  Serious: No
  Sender: FDA-Public Use
  Company Number: US-PFIZER INC-202201358832

PATIENT
  Age: 61 Year
  Sex: Female

DRUGS (2)
  1. POTASSIUM ACETATE [Suspect]
     Active Substance: POTASSIUM ACETATE
     Dosage: UNK
     Dates: end: 20221205
  2. LASIX [Suspect]
     Active Substance: FUROSEMIDE
     Dosage: UNK
     Dates: end: 20221205

REACTIONS (1)
  - Migraine [Not Recovered/Not Resolved]
